FAERS Safety Report 20673467 (Version 1)
Quarter: 2022Q2

REPORT INFORMATION
  Report Type: Other
  Country: US (occurrence: None)
  Receive Date: 20220405
  Receipt Date: 20220405
  Transmission Date: 20220721
  Serious: Yes (Other)
  Sender: FDA-Public Use
  Company Number: US-Navinta LLC-000244

PATIENT
  Age: 61 Year
  Sex: Male

DRUGS (5)
  1. RIBAVIRIN [Suspect]
     Active Substance: RIBAVIRIN
     Indication: Hepatitis C
     Dosage: 600 MG TWICE DAILY
  2. GLECAPREVIR\PIBRENTASVIR [Suspect]
     Active Substance: GLECAPREVIR\PIBRENTASVIR
     Indication: Hepatitis C
     Dosage: 100-40 MG DAILY
  3. SOFOSBUVIR [Suspect]
     Active Substance: SOFOSBUVIR
     Indication: Hepatitis C
     Dosage: 400 MG DAILY
  4. VELPATASVIR [Suspect]
     Active Substance: VELPATASVIR
     Indication: Hepatitis C
  5. VOXILAPREVIR [Suspect]
     Active Substance: VOXILAPREVIR
     Indication: Hepatitis C

REACTIONS (5)
  - Non-Hodgkin^s lymphoma recurrent [Recovered/Resolved]
  - Viraemia [Recovered/Resolved]
  - Disease progression [Recovered/Resolved]
  - Treatment failure [Unknown]
  - Insomnia [Unknown]
